FAERS Safety Report 20677720 (Version 10)
Quarter: 2023Q1

REPORT INFORMATION
  Report Type: Report from Study
  Country: AR (occurrence: AR)
  Receive Date: 20220406
  Receipt Date: 20230128
  Transmission Date: 20230417
  Serious: Yes (Hospitalization)
  Sender: FDA-Public Use
  Company Number: AR-NOVARTISPH-NVSC2022AR075240

PATIENT
  Age: 37 Year
  Sex: Female
  Weight: 76 kg

DRUGS (3)
  1. ERELZI [Suspect]
     Active Substance: ETANERCEPT-SZZS
     Indication: Rheumatoid arthritis
     Dosage: 50 MG, QW
     Route: 058
     Dates: start: 20220215
  2. ERELZI [Suspect]
     Active Substance: ETANERCEPT-SZZS
     Dosage: 2 WEEKS AGO
     Route: 065
     Dates: end: 20220915
  3. ERELZI [Suspect]
     Active Substance: ETANERCEPT-SZZS
     Dosage: UNK
     Route: 065
     Dates: start: 20221102

REACTIONS (17)
  - Cholelithiasis [Unknown]
  - Nephrolithiasis [Unknown]
  - Malaise [Unknown]
  - Weight decreased [Unknown]
  - Abdominal pain [Unknown]
  - Diarrhoea [Unknown]
  - Asthenia [Unknown]
  - Arthralgia [Unknown]
  - Pain in extremity [Unknown]
  - Rebound effect [Unknown]
  - Condition aggravated [Unknown]
  - Foot deformity [Unknown]
  - Hand deformity [Unknown]
  - Neck pain [Unknown]
  - Jaw disorder [Unknown]
  - Pain [Not Recovered/Not Resolved]
  - Product dose omission issue [Unknown]

NARRATIVE: CASE EVENT DATE: 20220323
